FAERS Safety Report 10017198 (Version 1)
Quarter: 2014Q1

REPORT INFORMATION
  Report Type: Spontaneous
  Country: US (occurrence: US)
  Receive Date: 20140318
  Receipt Date: 20140318
  Transmission Date: 20141002
  Serious: Yes (Other)
  Sender: FDA-Public Use
  Company Number: US-ASTRAZENECA-2014SE17302

PATIENT
  Age: 77 Year
  Sex: Female
  Weight: 79.4 kg

DRUGS (7)
  1. ATACAND [Suspect]
     Indication: HYPERTENSION
     Route: 048
     Dates: start: 2006
  2. ATACAND [Suspect]
     Indication: HYPERTENSION
     Route: 048
     Dates: end: 201401
  3. ATACAND [Suspect]
     Indication: HYPERTENSION
     Dosage: ONE HALF OF 32 MG DAILY, CANDESARTAN CILEXETIL
     Route: 048
     Dates: start: 20140125, end: 201402
  4. ATACAND [Suspect]
     Indication: HYPERTENSION
     Route: 048
     Dates: start: 201402, end: 20140302
  5. NEXIUM [Suspect]
     Indication: ULCER
     Route: 048
     Dates: start: 201403
  6. LISINOPRIL [Suspect]
     Indication: HYPERTENSION
     Route: 048
     Dates: start: 2006, end: 2006
  7. COMBINATION T3 T4 [Concomitant]
     Indication: THYROID DISORDER

REACTIONS (7)
  - Ulcer [Unknown]
  - Diabetes mellitus [Not Recovered/Not Resolved]
  - Weight increased [Recovered/Resolved]
  - Abdominal discomfort [Recovered/Resolved]
  - Abdominal pain upper [Recovered/Resolved]
  - Chest pain [Recovered/Resolved]
  - Cough [Recovered/Resolved]
